FAERS Safety Report 25203982 (Version 1)
Quarter: 2025Q2

REPORT INFORMATION
  Report Type: Spontaneous
  Country: US (occurrence: US)
  Receive Date: 20250416
  Receipt Date: 20250416
  Transmission Date: 20250716
  Serious: Yes (Other)
  Sender: AMGEN
  Company Number: US-AMGEN-USASP2025065882

PATIENT

DRUGS (3)
  1. PREDNISONE [Suspect]
     Active Substance: PREDNISONE
     Indication: Alanine aminotransferase increased
     Dosage: 40 MILLIGRAM, QD
     Route: 048
  2. PREDNISONE [Suspect]
     Active Substance: PREDNISONE
     Indication: Prophylaxis
  3. PREDNISONE [Suspect]
     Active Substance: PREDNISONE
     Indication: Immunosuppressant drug therapy

REACTIONS (15)
  - Hyperinsulinaemic hypoglycaemia [Unknown]
  - Lactic acidosis [Unknown]
  - Nephrolithiasis [Unknown]
  - Hyperglycaemia [Unknown]
  - Hepatic enzyme increased [Recovered/Resolved]
  - Hyperinsulinism [Unknown]
  - Metabolic disorder [Unknown]
  - Cellulitis [Unknown]
  - Migraine [Unknown]
  - Headache [Unknown]
  - Diarrhoea [Unknown]
  - Vomiting [Unknown]
  - Hypertriglyceridaemia [Unknown]
  - Hyperlactacidaemia [Unknown]
  - Hyperlipidaemia [Unknown]
